FAERS Safety Report 23499273 (Version 1)
Quarter: 2024Q1

REPORT INFORMATION
  Report Type: Spontaneous
  Country: GB (occurrence: GB)
  Receive Date: 20240208
  Receipt Date: 20240208
  Transmission Date: 20240409
  Serious: Yes (Hospitalization)
  Sender: FDA-Public Use
  Company Number: GB-XEOLAS-UKAF04120231218

PATIENT
  Age: 2 Month
  Sex: Male

DRUGS (4)
  1. OMEPRAZOLE [Suspect]
     Active Substance: OMEPRAZOLE
     Dosage: 4MG/ML; TUBE FED
     Route: 048
  2. SODIUM FEREDETATE [Concomitant]
     Active Substance: SODIUM FEREDETATE
     Indication: Product used for unknown indication
     Dosage: 27.5MG IRON IN 5ML ELIXIR, 5.5MG, ONCE DAILY
     Route: 048
  3. VITAMINS [Concomitant]
     Active Substance: VITAMINS
     Indication: Product used for unknown indication
     Dosage: 0.6ML, ONCE DAILY
     Route: 048
  4. FOLIC ACID [Concomitant]
     Active Substance: FOLIC ACID
     Indication: Product used for unknown indication
     Dosage: 2.5MG IN 5ML, 0.1MG, ONCE DAILY
     Route: 048

REACTIONS (11)
  - Oral blood blister [Unknown]
  - Mouth haemorrhage [Unknown]
  - Lip injury [Unknown]
  - Scab [Unknown]
  - Skin discolouration [Unknown]
  - Rash macular [Unknown]
  - Constipation [Unknown]
  - Hyperhidrosis [Unknown]
  - Incorrect dose administered [Unknown]
  - Contusion [Recovered/Resolved]
  - Inguinal hernia [Unknown]

NARRATIVE: CASE EVENT DATE: 20231212
